FAERS Safety Report 13069755 (Version 2)
Quarter: 2017Q1

REPORT INFORMATION
  Report Type: Spontaneous
  Country: CA (occurrence: CA)
  Receive Date: 20161228
  Receipt Date: 20170103
  Transmission Date: 20170428
  Serious: Yes (Other)
  Sender: FDA-Public Use
  Company Number: CA-SA-2016SA232290

PATIENT
  Sex: Female

DRUGS (2)
  1. PREDNISONE. [Concomitant]
     Active Substance: PREDNISONE
     Route: 048
     Dates: start: 20161212, end: 20161214
  2. AUBAGIO [Suspect]
     Active Substance: TERIFLUNOMIDE
     Indication: RELAPSING-REMITTING MULTIPLE SCLEROSIS
     Route: 048
     Dates: start: 2015, end: 20161221

REACTIONS (5)
  - Loss of consciousness [Unknown]
  - Sigmoidoscopy abnormal [Unknown]
  - Abdominal pain [Unknown]
  - Multiple sclerosis relapse [Not Recovered/Not Resolved]
  - Intestinal ischaemia [Unknown]

NARRATIVE: CASE EVENT DATE: 2016
